FAERS Safety Report 5662304-4 (Version None)
Quarter: 2008Q1

REPORT INFORMATION
  Report Type: 
  Country: None (occurrence: None)
  Receive Date: 20080312
  Receipt Date: 20080208
  Transmission Date: 20080703
  Serious: Yes (Hospitalization)
  Sender: FDA-Public Use
  Company Number: GB-PFIZER INC-2008013096

PATIENT
  Age: 49 Year
  Sex: Female

DRUGS (1)
  1. CHANTIX [Suspect]
     Indication: SMOKING CESSATION THERAPY
     Dosage: DAILY DOSE:.5MG-TEXT:0.5MG
     Route: 048
     Dates: start: 20071031, end: 20080120

REACTIONS (1)
  - AMNESIA [None]
